FAERS Safety Report 10396584 (Version 2)
Quarter: 2014Q4

REPORT INFORMATION
  Report Type: Spontaneous
  Country: AR (occurrence: None)
  Receive Date: 20140818
  Receipt Date: 20141009
  Transmission Date: 20150528
  Serious: Yes (Other)
  Sender: FDA-Public Use
  Company Number: VAL_03326_2014

PATIENT
  Age: 49 Year
  Sex: Female

DRUGS (1)
  1. METHYLERGOMETRINE MALEATE [Suspect]
     Active Substance: METHYLERGONOVINE MALEATE
     Indication: UTERINE LEIOMYOMA
     Dosage: SHE USED IT ONLY DURING MESTURAL PERIOD)?
     Dates: start: 2011

REACTIONS (10)
  - Anaemia [None]
  - General physical health deterioration [None]
  - Screaming [None]
  - Anger [None]
  - Nervousness [None]
  - Activities of daily living impaired [None]
  - Feeling of despair [None]
  - Anxiety [None]
  - Menorrhagia [None]
  - Abnormal behaviour [None]

NARRATIVE: CASE EVENT DATE: 201401
